FAERS Safety Report 7725628-2 (Version None)
Quarter: 2011Q3

REPORT INFORMATION
  Report Type: 
  Country: None (occurrence: None)
  Receive Date: 20110902
  Receipt Date: 20110823
  Transmission Date: 20111222
  Serious: Yes (Other)
  Sender: FDA-Public Use
  Company Number: US-US-EMD SERONO, INC.-7079314

PATIENT
  Sex: Female

DRUGS (1)
  1. REBIF [Suspect]
     Indication: MULTIPLE SCLEROSIS
     Route: 058
     Dates: start: 20090813

REACTIONS (9)
  - INJECTION SITE INDURATION [None]
  - CATATONIA [None]
  - GROIN PAIN [None]
  - SENSATION OF HEAVINESS [None]
  - LYMPHADENOPATHY [None]
  - COGNITIVE DISORDER [None]
  - DEPRESSION [None]
  - FATIGUE [None]
  - INJECTION SITE PAIN [None]
